FAERS Safety Report 18679230 (Version 1)
Quarter: 2020Q4

REPORT INFORMATION
  Report Type: Spontaneous
  Country: US (occurrence: US)
  Receive Date: 20201229
  Receipt Date: 20201229
  Transmission Date: 20210114
  Serious: No
  Sender: FDA-Public Use
  Company Number: US-PFIZER INC-2020511540

PATIENT
  Age: 84 Year
  Sex: Male

DRUGS (2)
  1. VYNDAMAX [Suspect]
     Active Substance: TAFAMIDIS
     Indication: AMYLOIDOSIS SENILE
  2. VYNDAMAX [Suspect]
     Active Substance: TAFAMIDIS
     Indication: AMYLOIDOSIS
     Dosage: 61 MG

REACTIONS (6)
  - Insomnia [Unknown]
  - Dyspnoea exertional [Unknown]
  - Off label use [Unknown]
  - Fatigue [Unknown]
  - Arthropathy [Unknown]
  - Decreased activity [Unknown]
